FAERS Safety Report 7625372-6 (Version None)
Quarter: 2011Q3

REPORT INFORMATION
  Report Type: 
  Country: None (occurrence: None)
  Receive Date: 20110721
  Receipt Date: 20110714
  Transmission Date: 20111222
  Serious: Yes (Other)
  Sender: FDA-Public Use
  Company Number: CR-BAYER-2011-061425

PATIENT
  Age: 28 Year
  Sex: Female

DRUGS (1)
  1. MIRENA [Suspect]
     Route: 015

REACTIONS (2)
  - VAGINAL HAEMORRHAGE [None]
  - ENDOMETRIAL ATROPHY [None]
